FAERS Safety Report 11211427 (Version 1)
Quarter: 2015Q2

REPORT INFORMATION
  Report Type: Spontaneous
  Country: US (occurrence: None)
  Receive Date: 20150619
  Receipt Date: 20150619
  Transmission Date: 20150821
  Serious: Yes (Other)
  Sender: FDA-Public Use
  Company Number: None

PATIENT
  Age: 51 Year
  Sex: Female
  Weight: 79.38 kg

DRUGS (7)
  1. BLACK COHOSH [Concomitant]
     Active Substance: BLACK COHOSH
  2. VITAMIN D [Concomitant]
     Active Substance: CHOLECALCIFEROL
  3. BIOTIN [Concomitant]
     Active Substance: BIOTIN
  4. CALCIUM [Concomitant]
     Active Substance: CALCIUM
  5. LAMICTAL [Suspect]
     Active Substance: LAMOTRIGINE
     Dosage: 2.200 MG DAILY AT BED TIME
  6. MULTI VITAMIN [Concomitant]
     Active Substance: VITAMINS
  7. LAMICTAL [Suspect]
     Active Substance: LAMOTRIGINE
     Indication: PREMENSTRUAL DYSPHORIC DISORDER
     Dosage: 2.200 MG DAILY AT BED TIME

REACTIONS (2)
  - Cough [None]
  - Osteopenia [None]

NARRATIVE: CASE EVENT DATE: 20150611
